FAERS Safety Report 5823885-0 (Version None)
Quarter: 2008Q3

REPORT INFORMATION
  Report Type: 
  Country: None (occurrence: None)
  Receive Date: 20080724
  Receipt Date: 20080715
  Transmission Date: 20090109
  Serious: Yes (Other)
  Sender: FDA-Public Use
  Company Number: CHPA2008US12006

PATIENT
  Age: 64 Year
  Sex: Male

DRUGS (1)
  1. MAALOX ANTACID/ ANTIGAS RD LIQ COOL MINT (NCH) (MAGNESIUM HYDROXIDE, A [Suspect]
     Indication: FLATULENCE
     Dosage: ORAL
     Route: 048
     Dates: start: 19870101, end: 20080707

REACTIONS (2)
  - INTENTIONAL DRUG MISUSE [None]
  - PROSTATOMEGALY [None]
